FAERS Safety Report 6004324-6 (Version None)
Quarter: 2008Q4

REPORT INFORMATION
  Report Type: 
  Country: None (occurrence: None)
  Receive Date: 20081215
  Receipt Date: 20081215
  Transmission Date: 20090506
  Serious: No
  Sender: FDA-Public Use
  Company Number: None

PATIENT
  Sex: Male
  Weight: 80.7403 kg

DRUGS (1)
  1. PHOSPHOSODA FLEET'S [Suspect]
     Indication: COLONOSCOPY
     Dosage: FULL ADULT DOSAGE ONE-TIME PO
     Route: 048
     Dates: start: 20080917, end: 20080917

REACTIONS (2)
  - PERINEAL PAIN [None]
  - TESTICULAR PAIN [None]
